FAERS Safety Report 13175953 (Version 1)
Quarter: 2017Q1

REPORT INFORMATION
  Report Type: Report from Study
  Country: US (occurrence: US)
  Receive Date: 20170201
  Receipt Date: 20170201
  Transmission Date: 20170428
  Serious: Yes (Other)
  Sender: FDA-Public Use
  Company Number: US-SA-2017SA013815

PATIENT
  Age: 62 Year
  Sex: Female

DRUGS (1)
  1. LEMTRADA [Suspect]
     Active Substance: ALEMTUZUMAB
     Indication: MULTIPLE SCLEROSIS
     Route: 041
     Dates: start: 20161024, end: 20161026

REACTIONS (2)
  - Mycobacterium avium complex infection [Unknown]
  - Legionella infection [Unknown]

NARRATIVE: CASE EVENT DATE: 201611
